FAERS Safety Report 6224277-5 (Version None)
Quarter: 2009Q2

REPORT INFORMATION
  Report Type: 
  Country: None (occurrence: None)
  Receive Date: 20090612
  Receipt Date: 20090313
  Transmission Date: 20091009
  Serious: Yes (Hospitalization)
  Sender: FDA-Public Use
  Company Number: US-ABBOTT-09P-163-0562625-00

PATIENT
  Sex: Male
  Weight: 43.13 kg

DRUGS (3)
  1. HUMIRA [Suspect]
     Indication: CROHN'S DISEASE
     Dosage: CAN'T RECALL STRENGTH
     Route: 058
     Dates: start: 20090101, end: 20090101
  2. HUMIRA [Suspect]
     Route: 058
     Dates: start: 20090201
  3. ASACOL [Concomitant]
     Indication: CROHN'S DISEASE
     Route: 048

REACTIONS (4)
  - CROHN'S DISEASE [None]
  - HEADACHE [None]
  - INJECTION SITE PAIN [None]
  - PYREXIA [None]
